FAERS Safety Report 7997027-X (Version None)
Quarter: 2011Q4

REPORT INFORMATION
  Report Type: 
  Country: None (occurrence: None)
  Receive Date: 20111221
  Receipt Date: 20111212
  Transmission Date: 20120403
  Serious: No
  Sender: FDA-Public Use
  Company Number: PHHY2011ES36937

PATIENT
  Age: 63 Year
  Sex: Male

DRUGS (1)
  1. TASIGNA [Suspect]
     Dosage: 200 MG, 4 CAPSULES A DAY
     Route: 048

REACTIONS (3)
  - HEPATIC PAIN [None]
  - DRUG ADMINISTRATION ERROR [None]
  - ABDOMINAL PAIN UPPER [None]
